FAERS Safety Report 13617071 (Version 1)
Quarter: 2017Q2

REPORT INFORMATION
  Report Type: Spontaneous
  Country: US (occurrence: US)
  Receive Date: 20170606
  Receipt Date: 20170606
  Transmission Date: 20170830
  Serious: Yes (Other)
  Sender: FDA-Public Use
  Company Number: US-SA-2016SA181216

PATIENT
  Age: 78 Year
  Sex: Female
  Weight: 74.38 kg

DRUGS (8)
  1. LANTUS SOLOSTAR [Suspect]
     Active Substance: INSULIN GLARGINE
     Indication: TYPE 2 DIABETES MELLITUS
     Route: 065
     Dates: start: 201610
  2. LANTUS SOLOSTAR [Suspect]
     Active Substance: INSULIN GLARGINE
     Indication: TYPE 2 DIABETES MELLITUS
     Dosage: 70U AM/20 U PM
     Route: 065
     Dates: start: 2006
  3. FENOFIBRATE. [Concomitant]
     Active Substance: FENOFIBRATE
     Indication: BLOOD CHOLESTEROL
     Dosage: STRENGTH: 145 MG
  4. CARVEDILOL. [Concomitant]
     Active Substance: CARVEDILOL
     Indication: BLOOD PRESSURE MEASUREMENT
     Dosage: STRENGTH: 45
  5. SOLOSTAR [Concomitant]
     Active Substance: DEVICE
     Dates: start: 2006
  6. AMLODIPINE [Concomitant]
     Active Substance: AMLODIPINE BESYLATE
     Indication: BLOOD PRESSURE MEASUREMENT
     Dosage: STRENGTH: 5 MG
  7. RESTASIS [Concomitant]
     Active Substance: CYCLOSPORINE
     Dosage: STRENGTH: 60 ML
  8. LISINOPRIL. [Concomitant]
     Active Substance: LISINOPRIL
     Indication: BLOOD PRESSURE MEASUREMENT
     Dosage: STRENGTH: 40 MG, DOSE: 1 DF

REACTIONS (3)
  - Cataract [Unknown]
  - Product use issue [Unknown]
  - Visual impairment [Unknown]
